FAERS Safety Report 9070294 (Version 1)
Quarter: 2013Q1

REPORT INFORMATION
  Report Type: Spontaneous
  Country: US (occurrence: US)
  Receive Date: 20130215
  Receipt Date: 20130215
  Transmission Date: 20140127
  Serious: Yes (Hospitalization)
  Sender: FDA-Public Use
  Company Number: US-BAYER-2013-019606

PATIENT
  Age: 18 Year
  Sex: Female
  Weight: 65.31 kg

DRUGS (6)
  1. OCELLA [Suspect]
  2. YASMIN [Suspect]
  3. LISINOPRIL [Concomitant]
     Dosage: 5 MG, UNK
     Route: 048
     Dates: start: 20101012, end: 20120124
  4. HUMALOG [Concomitant]
     Indication: TYPE 1 DIABETES MELLITUS
     Dosage: 3 UNITS - SLIDING SCALE
     Route: 058
     Dates: start: 20100106, end: 20120811
  5. LANTUS [Concomitant]
     Indication: TYPE 1 DIABETES MELLITUS
     Dosage: 90 UNITS AT BED TIME
     Route: 058
     Dates: start: 20120124, end: 20120912
  6. PROMETHAZINE HYDROCHLORIDE [Concomitant]
     Dosage: 25 MG, UNK
     Route: 048
     Dates: start: 20111116

REACTIONS (1)
  - Pulmonary embolism [None]
